FAERS Safety Report 14580763 (Version 1)
Quarter: 2018Q1

REPORT INFORMATION
  Report Type: Spontaneous
  Country: US (occurrence: US)
  Receive Date: 20180228
  Receipt Date: 20180228
  Transmission Date: 20180509
  Serious: No
  Sender: FDA-Public Use
  Company Number: US-TEVA-2018-US-854967

PATIENT
  Sex: Male

DRUGS (1)
  1. MUCUS D [Suspect]
     Active Substance: GUAIFENESIN\PSEUDOEPHEDRINE HYDROCHLORIDE
     Dosage: 60 MILLIGRAM / 600 MILLIGRAM
     Dates: start: 201801

REACTIONS (1)
  - Drug ineffective [Unknown]
